FAERS Safety Report 6771177-8 (Version None)
Quarter: 2010Q2

REPORT INFORMATION
  Report Type: 
  Country: None (occurrence: None)
  Receive Date: 20100616
  Receipt Date: 20100607
  Transmission Date: 20101027
  Serious: Yes (Death)
  Sender: FDA-Public Use
  Company Number: PHHY2010KR37568

PATIENT
  Sex: Male
  Weight: 67 kg

DRUGS (1)
  1. ZOLEDRONATE T29581+SOLINF [Suspect]
     Indication: MULTIPLE MYELOMA
     Dosage: 4 MG, UNK
     Dates: start: 20031113, end: 20031204

REACTIONS (1)
  - DYSPNOEA [None]
